FAERS Safety Report 7061042-3 (Version None)
Quarter: 2010Q4

REPORT INFORMATION
  Report Type: 
  Country: None (occurrence: None)
  Receive Date: 20101026
  Receipt Date: 20101018
  Transmission Date: 20110411
  Serious: Yes (Other)
  Sender: FDA-Public Use
  Company Number: US-PFIZER INC-2010132760

PATIENT
  Sex: Female
  Weight: 70.295 kg

DRUGS (1)
  1. ESTRING [Suspect]
     Indication: VULVOVAGINAL DRYNESS
     Dosage: 2 MG, UNK
     Route: 067
     Dates: start: 20100822, end: 20100918

REACTIONS (6)
  - DIZZINESS [None]
  - GENITAL RASH [None]
  - HYPERSENSITIVITY [None]
  - PSORIASIS [None]
  - VULVOVAGINAL PAIN [None]
  - VULVOVAGINAL PRURITUS [None]
